FAERS Safety Report 4590563-8 (Version None)
Quarter: 2005Q1

REPORT INFORMATION
  Report Type: 
  Country: None (occurrence: None)
  Receive Date: 20050224
  Receipt Date: 20050215
  Transmission Date: 20050727
  Serious: Yes (Other)
  Sender: FDA-Public Use
  Company Number: US-GLAXOSMITHKLINE-A0545720A

PATIENT
  Age: 95 Year
  Sex: Male

DRUGS (5)
  1. REQUIP [Suspect]
     Indication: RESTLESS LEGS SYNDROME
     Route: 048
  2. CARBIDOPA AND LEVODOPA [Concomitant]
  3. CELEBREX [Concomitant]
  4. IRON SUPPLEMENT [Concomitant]
  5. PROSCAR [Concomitant]

REACTIONS (2)
  - BLINDNESS [None]
  - BLINDNESS TRANSIENT [None]
